FAERS Safety Report 22942432 (Version 5)
Quarter: 2024Q3

REPORT INFORMATION
  Report Type: Spontaneous
  Country: JP (occurrence: JP)
  Receive Date: 20230914
  Receipt Date: 20240725
  Transmission Date: 20241017
  Serious: Yes (Other)
  Sender: GLAXOSMITHKLINE
  Company Number: JP-GSKNCCC-Case-01806602_AE-74991

PATIENT

DRUGS (14)
  1. FLUTICASONE FUROATE\VILANTEROL TRIFENATATE [Suspect]
     Active Substance: FLUTICASONE FUROATE\VILANTEROL TRIFENATATE
     Indication: Asthma
     Dosage: 200 ?G, 1D
     Route: 055
     Dates: start: 20230826, end: 20230826
  2. TULOBUTEROL [Suspect]
     Active Substance: TULOBUTEROL
     Indication: Asthma
     Dosage: 1 MG, BID
     Route: 048
     Dates: start: 20230819, end: 20230825
  3. THEOPHYLLINE [Suspect]
     Active Substance: THEOPHYLLINE
     Indication: Asthma
     Dosage: 400 MG, 1D
     Route: 048
     Dates: start: 20230822, end: 20230904
  4. AMINOPHYLLINE [Suspect]
     Active Substance: AMINOPHYLLINE
     Indication: Asthma
     Dosage: 250 MG
     Route: 042
     Dates: start: 20230822
  5. AMINOPHYLLINE [Suspect]
     Active Substance: AMINOPHYLLINE
     Dosage: 125 MG
     Route: 042
     Dates: start: 20230824
  6. CARBOCYSTEINE [Concomitant]
     Active Substance: CARBOCYSTEINE
     Indication: Asthma
     Dosage: 500 MG, TID
     Route: 048
     Dates: start: 20230825, end: 20230907
  7. MONTELUKAST SODIUM [Concomitant]
     Active Substance: MONTELUKAST SODIUM
     Indication: Asthma
     Dosage: 1 DF, 1D
     Route: 048
     Dates: start: 20230825, end: 20231120
  8. CALONAL [Concomitant]
     Active Substance: ACETAMINOPHEN
     Indication: Inflammation
     Dosage: 1000 MG, BID
     Route: 048
     Dates: start: 20230817, end: 20230817
  9. PROCATEROL HYDROCHLORIDE [Concomitant]
     Active Substance: PROCATEROL HYDROCHLORIDE
     Indication: Asthma
     Dosage: UNK, 1 TO 2 INHALATIONS AT THE ONSET OF ASTHMA ATTACK
     Route: 055
     Dates: start: 20230825
  10. SYMBICORT [Concomitant]
     Active Substance: BUDESONIDE\FORMOTEROL FUMARATE DIHYDRATE
     Indication: Asthma
     Dosage: UNK, BID, 2 INHALATIONS PER DOSE
     Dates: start: 20230823, end: 20230823
  11. ALVESCO [Concomitant]
     Active Substance: CICLESONIDE
     Indication: Asthma
     Dosage: 400 ?G, BID, 2 INHALATIONS PER DOSE
     Route: 055
     Dates: start: 20230817, end: 20230822
  12. GARENOXACIN MESYLATE [Concomitant]
     Active Substance: GARENOXACIN MESYLATE
     Indication: Bronchitis
     Dosage: 400 MG, 1D
     Route: 048
     Dates: start: 20230817, end: 20230821
  13. SOLU-MEDROL [Concomitant]
     Active Substance: METHYLPREDNISOLONE SODIUM SUCCINATE
     Indication: Asthma
     Dosage: 80 MG
     Route: 042
     Dates: start: 20230822
  14. SOLU-MEDROL [Concomitant]
     Active Substance: METHYLPREDNISOLONE SODIUM SUCCINATE
     Dosage: 80 MG
     Route: 042
     Dates: start: 20230824

REACTIONS (5)
  - Vomiting [Recovered/Resolved]
  - Gastrooesophageal reflux disease [Recovered/Resolved]
  - Nausea [Recovered/Resolved]
  - Palpitations [Recovered/Resolved]
  - Dizziness [Recovered/Resolved]

NARRATIVE: CASE EVENT DATE: 20230826
